FAERS Safety Report 6343966-5 (Version None)
Quarter: 2009Q3

REPORT INFORMATION
  Report Type: 
  Country: None (occurrence: None)
  Receive Date: 20090908
  Receipt Date: 20090826
  Transmission Date: 20100115
  Serious: Yes (Hospitalization, Other)
  Sender: FDA-Public Use
  Company Number: US-ELI_LILLY_AND_COMPANY-US200907006033

PATIENT
  Sex: Female
  Weight: 52.608 kg

DRUGS (3)
  1. FORTEO [Suspect]
     Indication: OSTEOPOROSIS
     Dosage: 20 UG, DAILY (1/D)
     Route: 058
     Dates: start: 20080101
  2. MULTIVITAMIN [Concomitant]
     Indication: MACULAR DEGENERATION
     Dosage: UNK, 2/D
  3. TYLENOL (CAPLET) [Concomitant]
     Indication: OSTEOARTHRITIS
     Dosage: UNK, AS NEEDED

REACTIONS (3)
  - CYSTITIS [None]
  - OSTEOARTHRITIS [None]
  - VISUAL IMPAIRMENT [None]
